FAERS Safety Report 19453464 (Version 1)
Quarter: 2021Q2

REPORT INFORMATION
  Report Type: Spontaneous
  Country: US (occurrence: US)
  Receive Date: 20210623
  Receipt Date: 20210623
  Transmission Date: 20210717
  Serious: No
  Sender: FDA-Public Use
  Company Number: US-ACCORD-216122

PATIENT
  Age: 31 Year
  Sex: Female

DRUGS (1)
  1. CLONAZEPAM ACCORD [Suspect]
     Active Substance: CLONAZEPAM
     Indication: PRODUCT USED FOR UNKNOWN INDICATION
     Dosage: STRENGTH 0.5 MG

REACTIONS (11)
  - Product taste abnormal [Unknown]
  - Dry mouth [Unknown]
  - Skin burning sensation [Unknown]
  - Neurological decompensation [Unknown]
  - Constipation [Unknown]
  - Gastrointestinal sounds abnormal [Unknown]
  - Lip haemorrhage [Unknown]
  - Dehydration [Unknown]
  - Chapped lips [Unknown]
  - Eye irritation [Unknown]
  - Nausea [Unknown]
